FAERS Safety Report 9614385 (Version 1)
Quarter: 2013Q4

REPORT INFORMATION
  Report Type: Spontaneous
  Country: US (occurrence: None)
  Receive Date: 20131008
  Receipt Date: 20131008
  Transmission Date: 20140711
  Serious: No
  Sender: FDA-Public Use
  Company Number: None

PATIENT
  Sex: Male

DRUGS (1)
  1. ENBREL 50MG [Suspect]
     Indication: ARTHRITIS
     Route: 058
     Dates: start: 20120410

REACTIONS (1)
  - Amnesia [None]
